FAERS Safety Report 8536227-7 (Version None)
Quarter: 2012Q3

REPORT INFORMATION
  Report Type: 
  Country: None (occurrence: None)
  Receive Date: 20120725
  Receipt Date: 20120718
  Transmission Date: 20120928
  Serious: Yes (Death, Hospitalization)
  Sender: FDA-Public Use
  Company Number: FR-009507513-2012SP030772

PATIENT

DRUGS (7)
  1. BOCEPREVIR [Suspect]
     Indication: HEPATITIS C
     Dosage: 800 MG, TID
     Route: 048
     Dates: start: 20120307
  2. RIBAVIRIN [Suspect]
     Indication: HEPATITIS C
     Dosage: 400 MG, BID
     Route: 048
     Dates: start: 20120208
  3. ISENTRESS [Concomitant]
     Dosage: 400 MG, BID
  4. PEGINTERFERON ALFA-2B [Suspect]
     Indication: HEPATITIS C
     Dosage: 80 MICROGRAM, QW
     Route: 058
     Dates: start: 20120208
  5. TRUVADA [Concomitant]
     Indication: HIV INFECTION
     Dosage: 200 MG, QD
     Route: 048
  6. TRUVADA [Concomitant]
     Dosage: 400 UNK, UNK
     Route: 048
     Dates: start: 20120622
  7. ISENTRESS [Concomitant]
     Indication: HIV INFECTION
     Dosage: 400 MG, QD
     Route: 048
     Dates: start: 20110324

REACTIONS (1)
  - PYELONEPHRITIS ACUTE [None]
